FAERS Safety Report 7542057-5 (Version None)
Quarter: 2011Q2

REPORT INFORMATION
  Report Type: 
  Country: None (occurrence: None)
  Receive Date: 20110613
  Receipt Date: 20110608
  Transmission Date: 20111010
  Serious: Yes (Death, Other)
  Sender: FDA-Public Use
  Company Number: US-ASTELLAS-2011US002830

PATIENT
  Age: 24 Year
  Sex: Female

DRUGS (5)
  1. PROGRAF [Suspect]
     Indication: LIVER TRANSPLANT
     Dosage: 10.8 NG/ML, UNKNOWN/D
     Route: 065
  2. PREDNISONE [Concomitant]
     Indication: LIVER TRANSPLANT
     Dosage: 20 MG, UNKNOWN/D
     Route: 065
  3. CELLCEPT [Concomitant]
     Indication: LIVER TRANSPLANT
     Dosage: 1000 MG, BID
     Route: 065
  4. AZATHIOPRINE [Concomitant]
     Indication: PRODUCT USED FOR UNKNOWN INDICATION
     Dosage: UNK
     Route: 065
  5. AZATHIOPRINE [Concomitant]
     Indication: HEPATIC ENZYME INCREASED
     Dosage: UNK
     Route: 065

REACTIONS (5)
  - DRUG INEFFECTIVE [None]
  - ASPERGILLOSIS [None]
  - CHRONIC HEPATITIS [None]
  - LIVER TRANSPLANT REJECTION [None]
  - PREMATURE LABOUR [None]
